FAERS Safety Report 16890836 (Version 1)
Quarter: 2019Q4

REPORT INFORMATION
  Report Type: Spontaneous
  Country: US (occurrence: US)
  Receive Date: 20190812
  Receipt Date: 20190812
  Transmission Date: 20200122
  Serious: No
  Sender: FDA-Public Use
  Company Number: None

PATIENT
  Age: 66 Year
  Sex: Male
  Weight: 114 kg

DRUGS (12)
  1. LIDOCAINE OINTMENT [Concomitant]
     Active Substance: LIDOCAINE
  2. TOPIRAMATE. [Concomitant]
     Active Substance: TOPIRAMATE
  3. APIXABAN [Suspect]
     Active Substance: APIXABAN
     Indication: ATRIAL FIBRILLATION
     Dates: start: 20180913, end: 20190530
  4. ALLOPURINOL. [Concomitant]
     Active Substance: ALLOPURINOL
  5. CITALOPRAM [Concomitant]
     Active Substance: CITALOPRAM HYDROBROMIDE
  6. ISOSORBIDE MONONITRATE. [Concomitant]
     Active Substance: ISOSORBIDE MONONITRATE
  7. NITROGLYCERIN. [Concomitant]
     Active Substance: NITROGLYCERIN
  8. ATENOLOL. [Concomitant]
     Active Substance: ATENOLOL
  9. OMEPRAZOLE. [Concomitant]
     Active Substance: OMEPRAZOLE
  10. SIMVASTATIN. [Concomitant]
     Active Substance: SIMVASTATIN
  11. LISINOPRIL. [Concomitant]
     Active Substance: LISINOPRIL
  12. LEVETIRACETAM. [Concomitant]
     Active Substance: LEVETIRACETAM

REACTIONS (4)
  - Hepatic pain [None]
  - Myalgia [None]
  - Musculoskeletal disorder [None]
  - Renal pain [None]

NARRATIVE: CASE EVENT DATE: 20190330
